FAERS Safety Report 25681736 (Version 3)
Quarter: 2025Q3

REPORT INFORMATION
  Report Type: Spontaneous
  Country: GB (occurrence: GB)
  Receive Date: 20250814
  Receipt Date: 20250916
  Transmission Date: 20251021
  Serious: Yes (Death, Life-Threatening, Hospitalization, Disabling, Other)
  Sender: GILEAD
  Company Number: GB-GILEAD-2025-0724467

PATIENT
  Age: 66 Year
  Sex: Female
  Weight: 44.6 kg

DRUGS (6)
  1. YESCARTA [Suspect]
     Active Substance: AXICABTAGENE CILOLEUCEL
     Indication: Diffuse large B-cell lymphoma
     Route: 042
     Dates: start: 20250610, end: 20250610
  2. BISOPROLOL [Concomitant]
     Active Substance: BISOPROLOL
  3. COTRIMOXAZOLE [Concomitant]
     Active Substance: SULFAMETHOXAZOLE\TRIMETHOPRIM
  4. OMEPRAZOLE [Concomitant]
     Active Substance: OMEPRAZOLE
  5. ANAKINRA [Concomitant]
     Active Substance: ANAKINRA
  6. SILTUXIMAB [Concomitant]
     Active Substance: SILTUXIMAB

REACTIONS (4)
  - Immune effector cell-associated neurotoxicity syndrome [Fatal]
  - Immunosuppression [Unknown]
  - Cytokine release syndrome [Unknown]
  - Cytomegalovirus infection reactivation [Unknown]

NARRATIVE: CASE EVENT DATE: 20250614
